FAERS Safety Report 7020946-8 (Version None)
Quarter: 2010Q3

REPORT INFORMATION
  Report Type: 
  Country: None (occurrence: None)
  Receive Date: 20100929
  Receipt Date: 20100920
  Transmission Date: 20110219
  Serious: Yes (Hospitalization)
  Sender: FDA-Public Use
  Company Number: FR-ELI_LILLY_AND_COMPANY-FR201009004926

PATIENT
  Age: 63 Year
  Sex: Female

DRUGS (6)
  1. GEMZAR [Suspect]
     Indication: PANCREATIC CARCINOMA
     Dosage: UNK, UNKNOWN
     Route: 042
     Dates: start: 20100528, end: 20100528
  2. CEFPODOXIME PROXETIL [Concomitant]
     Indication: URINARY TRACT INFECTION
     Dosage: UNK, UNKNOWN
     Route: 048
     Dates: start: 20100521, end: 20100526
  3. KARDEGIC [Concomitant]
     Dosage: 160 MG, DAILY (1/D)
     Route: 048
  4. KEPPRA [Concomitant]
     Dosage: 160 MG, DAILY (1/D)
     Route: 048
  5. NEXIUM [Concomitant]
     Dosage: 20 MG, DAILY (1/D)
     Route: 048
  6. LASIX [Concomitant]
     Dosage: 40 MG, DAILY (1/D)
     Route: 048

REACTIONS (1)
  - PSEUDOMEMBRANOUS COLITIS [None]
